FAERS Safety Report 24424205 (Version 2)
Quarter: 2024Q4

REPORT INFORMATION
  Report Type: Report from Study
  Country: CA (occurrence: CA)
  Receive Date: 20241010
  Receipt Date: 20241126
  Transmission Date: 20250115
  Serious: Yes (Other)
  Sender: DR REDDYS
  Company Number: CA-drreddys-CLI/CAN/23/0171042

PATIENT
  Age: 45 Year
  Sex: Female

DRUGS (4)
  1. ZOLEDRONIC [Suspect]
     Active Substance: ZOLEDRONIC ACID
     Indication: Osteoporosis
     Route: 065
     Dates: start: 20190812
  2. ZOLEDRONIC [Suspect]
     Active Substance: ZOLEDRONIC ACID
     Route: 065
     Dates: start: 20201102
  3. ZOLEDRONIC [Suspect]
     Active Substance: ZOLEDRONIC ACID
     Route: 065
     Dates: start: 20211214
  4. ZOLEDRONIC [Suspect]
     Active Substance: ZOLEDRONIC ACID
     Route: 065
     Dates: start: 20230929

REACTIONS (3)
  - Nasal operation [Unknown]
  - Infection [Unknown]
  - Sinusitis [Unknown]
